FAERS Safety Report 4906265-1 (Version None)
Quarter: 2006Q1

REPORT INFORMATION
  Report Type: 
  Country: None (occurrence: None)
  Receive Date: 20060209
  Receipt Date: 20051018
  Transmission Date: 20060701
  Serious: Yes (Hospitalization)
  Sender: FDA-Public Use
  Company Number: GB-SANOFI-SYNTHELABO-A01200507200

PATIENT
  Age: 49 Year
  Sex: Female

DRUGS (6)
  1. HYDROXYCHLOROQUINE SULFATE [Suspect]
     Indication: ARTHRALGIA
     Route: 048
     Dates: start: 20040301, end: 20050901
  2. RAPAMUNE [Interacting]
     Indication: PROPHYLAXIS AGAINST TRANSPLANT REJECTION
     Route: 048
     Dates: start: 20020601
  3. AZATHIOPRINE [Interacting]
     Indication: PROPHYLAXIS AGAINST TRANSPLANT REJECTION
     Route: 048
     Dates: start: 20020130, end: 20050901
  4. ATORVASTATIN CALCIUM [Concomitant]
     Route: 048
     Dates: start: 20020305
  5. CEFRADINE [Concomitant]
     Route: 048
     Dates: start: 20040101
  6. RISEDRONATE [Concomitant]
     Route: 048
     Dates: start: 20040101

REACTIONS (4)
  - DRUG INTERACTION [None]
  - LEUKOPENIA [None]
  - PLATELET COUNT DECREASED [None]
  - THROMBOCYTOPENIA [None]
